FAERS Safety Report 7226946-7 (Version None)
Quarter: 2011Q1

REPORT INFORMATION
  Report Type: 
  Country: None (occurrence: None)
  Receive Date: 20110111
  Receipt Date: 20110111
  Transmission Date: 20110831
  Serious: Yes (Life-Threatening, Hospitalization)
  Sender: FDA-Public Use
  Company Number: None

PATIENT
  Sex: Male
  Weight: 90.7194 kg

DRUGS (2)
  1. CHANTIX [Suspect]
     Indication: BIPOLAR DISORDER
     Dosage: 1 PILL ONCE A DAY ORAL
     Route: 048
     Dates: start: 20081101, end: 20081201
  2. LITHIUM [Suspect]
     Indication: SMOKING CESSATION THERAPY
     Dosage: 4 PILLS TWICE A DAY ORAL
     Route: 048
     Dates: start: 20000101, end: 20100101

REACTIONS (1)
  - SUICIDAL BEHAVIOUR [None]
